FAERS Safety Report 12287837 (Version 2)
Quarter: 2016Q2

REPORT INFORMATION
  Report Type: Spontaneous
  Country: CA (occurrence: CA)
  Receive Date: 20160420
  Receipt Date: 20160428
  Transmission Date: 20160815
  Serious: Yes (Other)
  Sender: FDA-Public Use
  Company Number: CA-ASTRAZENECA-2016SE40633

PATIENT
  Age: 60 Year
  Sex: Male

DRUGS (1)
  1. BYDUREON [Suspect]
     Active Substance: EXENATIDE
     Route: 058
     Dates: start: 201602, end: 20160408

REACTIONS (2)
  - Injection site erythema [Unknown]
  - Injection site induration [Unknown]

NARRATIVE: CASE EVENT DATE: 20160303
